FAERS Safety Report 6546440-6 (Version None)
Quarter: 2010Q1

REPORT INFORMATION
  Report Type: 
  Country: None (occurrence: None)
  Receive Date: 20100122
  Receipt Date: 20100111
  Transmission Date: 20100710
  Serious: Yes (Hospitalization)
  Sender: FDA-Public Use
  Company Number: PHHY2010FR01262

PATIENT

DRUGS (6)
  1. GLEEVEC [Suspect]
     Indication: CHRONIC MYELOID LEUKAEMIA
     Dosage: 400 MG/DAY
     Route: 048
     Dates: start: 20020601
  2. ESOMEPRAZOLE [Concomitant]
  3. LYRICA [Concomitant]
  4. SOLUPRED [Concomitant]
  5. CHLORPROMAZINE HCL [Concomitant]
  6. SERETIDE [Concomitant]

REACTIONS (4)
  - GLOSSECTOMY [None]
  - RESPIRATORY FAILURE [None]
  - TONGUE NEOPLASM MALIGNANT STAGE UNSPECIFIED [None]
  - TRACHEOSTOMY [None]
